FAERS Safety Report 11188742 (Version 1)
Quarter: 2015Q2

REPORT INFORMATION
  Report Type: Spontaneous
  Country: US (occurrence: None)
  Receive Date: 20150611
  Receipt Date: 20150611
  Transmission Date: 20150821
  Serious: Yes (Other)
  Sender: FDA-Public Use
  Company Number: DEP_03008_2015

PATIENT
  Age: 81 Year
  Sex: Female
  Weight: 66.68 kg

DRUGS (17)
  1. NUCYNTA [Suspect]
     Active Substance: TAPENTADOL HYDROCHLORIDE
     Indication: PAIN
     Dosage: 1 TABLET
     Route: 048
     Dates: start: 20150603, end: 20150604
  2. FENTANYL. [Concomitant]
     Active Substance: FENTANYL
  3. TRAMADOL HCL [Concomitant]
     Active Substance: TRAMADOL HYDROCHLORIDE
  4. SIMVASTATIN. [Concomitant]
     Active Substance: SIMVASTATIN
  5. LEVOTHYROXINE [Concomitant]
     Active Substance: LEVOTHYROXINE
  6. METHOCARBAMOL. [Concomitant]
     Active Substance: METHOCARBAMOL
  7. TYLENOL [Concomitant]
     Active Substance: ACETAMINOPHEN
  8. NAMENDA [Concomitant]
     Active Substance: MEMANTINE HYDROCHLORIDE
  9. DOCUSATE [Concomitant]
     Active Substance: DOCUSATE
  10. MIRALAX [Concomitant]
     Active Substance: POLYETHYLENE GLYCOL 3350
  11. LOSARTAN [Concomitant]
     Active Substance: LOSARTAN
  12. ONDANSETRON [Concomitant]
     Active Substance: ONDANSETRON
  13. GENUINE ASPIRIN [Concomitant]
     Active Substance: ASPIRIN
  14. CELEBREX [Concomitant]
     Active Substance: CELECOXIB
  15. OMEPRAZOLE. [Concomitant]
     Active Substance: OMEPRAZOLE
  16. FLUCONAZOLE. [Concomitant]
     Active Substance: FLUCONAZOLE
  17. VITAMIN B12 [Concomitant]
     Active Substance: CYANOCOBALAMIN

REACTIONS (9)
  - Mobility decreased [None]
  - Nightmare [None]
  - Tremor [None]
  - Nausea [None]
  - Product quality issue [None]
  - Hallucination, visual [None]
  - Mental disorder [None]
  - Paranoia [None]
  - Drug ineffective [None]

NARRATIVE: CASE EVENT DATE: 20150603
